FAERS Safety Report 4557985-2 (Version None)
Quarter: 2005Q1

REPORT INFORMATION
  Report Type: 
  Country: None (occurrence: None)
  Receive Date: 20050121
  Receipt Date: 20040413
  Transmission Date: 20050727
  Serious: No
  Sender: FDA-Public Use
  Company Number: US-BRISTOL-MYERS SQUIBB COMPANY-12558359

PATIENT
  Age: 50 Year
  Sex: Female
  Weight: 54 kg

DRUGS (11)
  1. SERZONE [Suspect]
     Dosage: AT BEDTIME; THERAPY FROM UNKNOWN TO 21-FEB-04 AND 23-FEB-04, CONTINUING
     Route: 048
  2. XYREM [Suspect]
     Indication: POST-TRAUMATIC STRESS DISORDER
     Dosage: 2.25G 2X/NIGHT 21-FEB TO 23-FEB,5G/NIGHT FROM UNKNOWN DATE CONTINUING;9G NIGHTLY (2 DIVIDED DOSES)
     Route: 048
  3. XYREM [Suspect]
     Indication: INSOMNIA
     Dosage: 2.25G 2X/NIGHT 21-FEB TO 23-FEB,5G/NIGHT FROM UNKNOWN DATE CONTINUING;9G NIGHTLY (2 DIVIDED DOSES)
     Route: 048
  4. XYREM [Suspect]
     Indication: FATIGUE
     Dosage: 2.25G 2X/NIGHT 21-FEB TO 23-FEB,5G/NIGHT FROM UNKNOWN DATE CONTINUING;9G NIGHTLY (2 DIVIDED DOSES)
     Route: 048
  5. XYREM [Suspect]
     Indication: SOMNOLENCE
     Dosage: 2.25G 2X/NIGHT 21-FEB TO 23-FEB,5G/NIGHT FROM UNKNOWN DATE CONTINUING;9G NIGHTLY (2 DIVIDED DOSES)
     Route: 048
  6. EFFEXOR XR [Concomitant]
  7. XANAX [Concomitant]
  8. ESTRIOL [Concomitant]
  9. PROMETRIUM [Concomitant]
  10. CLIMARA [Concomitant]
  11. THYROID TAB [Concomitant]

REACTIONS (4)
  - CONFUSIONAL STATE [None]
  - DRUG WITHDRAWAL SYNDROME [None]
  - INSOMNIA [None]
  - TREMOR [None]
